FAERS Safety Report 8158763-8 (Version None)
Quarter: 2012Q1

REPORT INFORMATION
  Report Type: 
  Country: None (occurrence: None)
  Receive Date: 20120223
  Receipt Date: 20120217
  Transmission Date: 20120608
  Serious: Yes (Other)
  Sender: FDA-Public Use
  Company Number: GB-PFIZER INC-2012044225

PATIENT
  Age: 85 Year

DRUGS (3)
  1. XALATAN [Suspect]
     Indication: GLAUCOMA
     Dosage: UNK
     Route: 047
     Dates: start: 20111101, end: 20111202
  2. LUMIGAN [Suspect]
     Indication: GLAUCOMA
  3. TAMSULOSIN [Concomitant]
     Dosage: 400 UG, 2X/DAY

REACTIONS (6)
  - AGITATION [None]
  - BLOOD UREA INCREASED [None]
  - ANXIETY [None]
  - BLOOD CREATININE INCREASED [None]
  - MOOD ALTERED [None]
  - BLOOD ALKALINE PHOSPHATASE INCREASED [None]
